FAERS Safety Report 4372611-3 (Version None)
Quarter: 2004Q2

REPORT INFORMATION
  Report Type: 
  Country: None (occurrence: None)
  Receive Date: 20040526
  Receipt Date: 20040312
  Transmission Date: 20050107
  Serious: Yes (Hospitalization)
  Sender: FDA-Public Use
  Company Number: 2003SP000050

PATIENT
  Age: 82 Year
  Sex: Female
  Weight: 51.075 kg

DRUGS (16)
  1. XOPENEX [Suspect]
     Indication: CHRONIC OBSTRUCTIVE AIRWAYS DISEASE
     Dosage: 1.25 MG; Q6H; INHALATION
     Route: 055
     Dates: start: 20031009, end: 20031022
  2. ALBUTEROL [Concomitant]
  3. CAPTOPRIL [Concomitant]
  4. NORVASC [Concomitant]
  5. HYDRALAZINE [Concomitant]
  6. ISORDIL [Concomitant]
  7. EVISTA [Concomitant]
  8. PAXIL [Concomitant]
  9. PREVACID [Concomitant]
  10. SYNTHROID [Concomitant]
  11. ASPIRIN [Concomitant]
  12. HEPARIN [Concomitant]
  13. PREDNISONE [Concomitant]
  14. AZITHROMYCIN [Concomitant]
  15. ALBUTEROL [Concomitant]
  16. ATROVENT [Concomitant]

REACTIONS (1)
  - CHRONIC OBSTRUCTIVE AIRWAYS DISEASE EXACERBATED [None]
